FAERS Safety Report 9536213 (Version 1)
Quarter: 2013Q3

REPORT INFORMATION
  Report Type: Spontaneous
  Country: US (occurrence: None)
  Receive Date: 20130917
  Receipt Date: 20130917
  Transmission Date: 20140515
  Serious: No
  Sender: FDA-Public Use
  Company Number: None

PATIENT
  Age: 65 Year
  Sex: Female
  Weight: 94.35 kg

DRUGS (9)
  1. LEVOFLOXACIN [Suspect]
     Indication: GASTROINTESTINAL INFECTION
     Dosage: 500 MG 1 PILL 1 TIME A DAY
     Dates: start: 20130813, end: 20130822
  2. BENADRYL [Concomitant]
  3. NEXIUM [Concomitant]
  4. MOTRIN [Concomitant]
  5. STATIN [Concomitant]
  6. MULTIVITAMIN [Concomitant]
  7. D3 [Concomitant]
  8. GLUCOSAMIN-CHONDRITIN [Concomitant]
  9. HIP REPLACEMENT [Concomitant]

REACTIONS (2)
  - Gait disturbance [None]
  - Arthralgia [None]
